FAERS Safety Report 10784622 (Version 3)
Quarter: 2015Q1

REPORT INFORMATION
  Report Type: Report from Study
  Country: HK (occurrence: HK)
  Receive Date: 20150211
  Receipt Date: 20150330
  Transmission Date: 20150721
  Serious: Yes (Death, Other)
  Sender: FDA-Public Use
  Company Number: HK-GLAXOSMITHKLINE-HK2014031505

PATIENT
  Age: 55 Year
  Sex: Female
  Weight: 53.8 kg

DRUGS (3)
  1. TRAMETINIB [Suspect]
     Active Substance: TRAMETINIB
     Indication: ACRAL LENTIGINOUS MELANOMA
     Dosage: 2 MG, QD
     Route: 048
     Dates: start: 20140707, end: 20141204
  2. DABRAFENIB [Suspect]
     Active Substance: DABRAFENIB
     Indication: ACRAL LENTIGINOUS MELANOMA
     Dosage: 150 MG, BID
     Route: 048
     Dates: start: 20140707, end: 20141204
  3. LOPERAMIDE [Concomitant]
     Active Substance: LOPERAMIDE

REACTIONS (1)
  - Pneumoperitoneum [Fatal]

NARRATIVE: CASE EVENT DATE: 20141204
